FAERS Safety Report 24871310 (Version 1)
Quarter: 2025Q1

REPORT INFORMATION
  Report Type: Spontaneous
  Country: ES (occurrence: ES)
  Receive Date: 20250122
  Receipt Date: 20250122
  Transmission Date: 20250408
  Serious: Yes (Other)
  Sender: MERCK KGAA
  Company Number: ES-Merck Healthcare KGaA-2025002035

PATIENT
  Sex: Female

DRUGS (1)
  1. LEVOTHYROXINE SODIUM [Suspect]
     Active Substance: LEVOTHYROXINE SODIUM
     Indication: Product used for unknown indication

REACTIONS (12)
  - Syncope [Unknown]
  - Overdose [Unknown]
  - Dyspnoea [Unknown]
  - Adenoiditis [Unknown]
  - Hypertension [Unknown]
  - Dizziness [Unknown]
  - Hepatic steatosis [Unknown]
  - Liver disorder [Unknown]
  - Dyspepsia [Unknown]
  - Headache [Unknown]
  - Hypersensitivity [Unknown]
  - Tachycardia [Unknown]
